FAERS Safety Report 20064078 (Version 2)
Quarter: 2021Q4

REPORT INFORMATION
  Report Type: Spontaneous
  Country: TR (occurrence: TR)
  Receive Date: 20211112
  Receipt Date: 20211125
  Transmission Date: 20220303
  Serious: No
  Sender: FDA-Public Use
  Company Number: TR-PFIZER INC-202101482333

PATIENT
  Age: 42 Year
  Sex: Female
  Weight: 95 kg

DRUGS (4)
  1. INLYTA [Interacting]
     Active Substance: AXITINIB
     Indication: Adenoid cystic carcinoma
     Dosage: 5 MG, 2X/DAY
     Dates: start: 202102
  2. TOPAMAX [Interacting]
     Active Substance: TOPIRAMATE
     Indication: Seizure
     Dosage: UNK
     Dates: start: 2021, end: 20211110
  3. PEMBROLIZUMAB [Concomitant]
     Active Substance: PEMBROLIZUMAB
     Indication: Immunochemotherapy
     Dosage: 1 IN 21 DAYS CYCLIC
     Dates: start: 202102
  4. KEPPRA [Concomitant]
     Active Substance: LEVETIRACETAM
     Indication: Seizure

REACTIONS (3)
  - Therapeutic response unexpected [Unknown]
  - Hepatic enzyme decreased [Unknown]
  - Drug interaction [Unknown]
